FAERS Safety Report 21273356 (Version 1)
Quarter: 2022Q3

REPORT INFORMATION
  Report Type: Other
  Country: CA (occurrence: CA)
  Receive Date: 20220831
  Receipt Date: 20220831
  Transmission Date: 20221027
  Serious: Yes (Hospitalization, Disabling, Other)
  Sender: FDA-Public Use
  Company Number: CA-CELLTRION INC.-2022CA014202

PATIENT

DRUGS (1)
  1. TRUXIMA [Suspect]
     Active Substance: RITUXIMAB-ABBS
     Indication: Rheumatoid arthritis
     Dosage: 1000 MILLIGRAM (SINGLE DOSE VIAL)
     Route: 042

REACTIONS (10)
  - Fracture [Unknown]
  - Hip arthroplasty [Unknown]
  - Hip fracture [Unknown]
  - Hospitalisation [Unknown]
  - Mobility decreased [Unknown]
  - Malaise [Unknown]
  - Sitting disability [Unknown]
  - Dizziness [Unknown]
  - Fatigue [Unknown]
  - Intentional dose omission [Unknown]
